FAERS Safety Report 11207505 (Version 2)
Quarter: 2015Q3

REPORT INFORMATION
  Report Type: Report from Study
  Country: JP (occurrence: JP)
  Receive Date: 20150622
  Receipt Date: 20150731
  Transmission Date: 20151125
  Serious: Yes (Other)
  Sender: FDA-Public Use
  Company Number: JP-XENOPORT, INC.-2015JP004161

PATIENT
  Age: 45 Year
  Sex: Female

DRUGS (13)
  1. DECADRON [Concomitant]
     Active Substance: DEXAMETHASONE
     Dosage: UNK
     Dates: start: 20140611, end: 20140611
  2. ADMAC DISPO [Concomitant]
     Dosage: UNK
     Dates: start: 20140807, end: 20140807
  3. MOHRUS [Concomitant]
     Active Substance: KETOPROFEN
     Dosage: UNK
     Dates: start: 20140514
  4. PROCAINE HYDROCHLORIDE [Concomitant]
     Active Substance: PROCAINE HYDROCHLORIDE
     Dosage: UNK
     Dates: start: 20140611, end: 20140611
  5. LYRICA [Concomitant]
     Active Substance: PREGABALIN
     Dosage: UNK
  6. LYRICA [Concomitant]
     Active Substance: PREGABALIN
     Dosage: UNK
  7. STRONGER NEO-MINOPHAGEN C [Concomitant]
     Active Substance: AMMONIUM GLYCYRRHIZATE\CYSTEINE HYDROCHLORIDE\GLYCINE
     Dosage: UNK
     Dates: start: 20140611
  8. WYPAX [Concomitant]
     Active Substance: LORAZEPAM
     Dosage: UNK
     Dates: start: 20131010
  9. PARIET [Concomitant]
     Active Substance: RABEPRAZOLE SODIUM
     Dosage: UNK
  10. NEUROTROPIN                        /00398601/ [Concomitant]
     Dosage: UNK
     Dates: start: 20140611
  11. REGNITE [Suspect]
     Active Substance: GABAPENTIN ENACARBIL
     Indication: RESTLESS LEGS SYNDROME
     Dosage: 300 MG, ONCE DAILY
     Route: 048
     Dates: start: 20131010
  12. MUCOSTA [Concomitant]
     Active Substance: REBAMIPIDE
     Dosage: UNK
     Dates: start: 20140417
  13. KENACORT [Concomitant]
     Active Substance: TRIAMCINOLONE
     Dosage: UNK
     Dates: start: 20140807, end: 20140807

REACTIONS (3)
  - Rash pruritic [Unknown]
  - Urticaria [Not Recovered/Not Resolved]
  - Hyperhidrosis [Recovered/Resolved]

NARRATIVE: CASE EVENT DATE: 20140417
